FAERS Safety Report 4901739-1 (Version None)
Quarter: 2006Q1

REPORT INFORMATION
  Report Type: 
  Country: None (occurrence: None)
  Receive Date: 20060202
  Receipt Date: 20060122
  Transmission Date: 20060701
  Serious: Yes (Other)
  Sender: FDA-Public Use
  Company Number: 2006009877

PATIENT
  Age: 44 Year
  Sex: Male
  Weight: 54.4316 kg

DRUGS (2)
  1. UNISOM [Suspect]
     Dosage: 16 SLEEPGELS ONCE, ORAL
     Route: 048
     Dates: start: 20060122, end: 20060122
  2. UNISOM [Suspect]

REACTIONS (1)
  - HALLUCINATION [None]
